FAERS Safety Report 6025618-4 (Version None)
Quarter: 2008Q4

REPORT INFORMATION
  Report Type: 
  Country: None (occurrence: None)
  Receive Date: 20081231
  Receipt Date: 20081212
  Transmission Date: 20090506
  Serious: No
  Sender: FDA-Public Use
  Company Number: US-B.I. PHARMACEUTICALS,INC./RIDGEFIELD-2008-BP-18668BP

PATIENT
  Age: 86 Year
  Sex: Female

DRUGS (5)
  1. COMBIVENT [Suspect]
     Indication: EMPHYSEMA
     Dosage: 10PUF
     Route: 055
     Dates: start: 20030101
  2. LISINOPRIL [Concomitant]
     Indication: HYPERTENSION
  3. HYDROCHLOROTHIAZIDE [Concomitant]
     Indication: HYPERTENSION
  4. TRAMADOL [Concomitant]
     Indication: PAIN IN EXTREMITY
  5. TRAMADOL [Concomitant]
     Indication: BACK PAIN

REACTIONS (2)
  - APHONIA [None]
  - DYSPHONIA [None]
